FAERS Safety Report 4545992-5 (Version None)
Quarter: 2005Q1

REPORT INFORMATION
  Report Type: 
  Country: None (occurrence: None)
  Receive Date: 20050103
  Receipt Date: 20041221
  Transmission Date: 20050727
  Serious: Yes (Death, Hospitalization)
  Sender: FDA-Public Use
  Company Number: 04P-163-0281495-00

PATIENT
  Age: 74 Year
  Sex: Female

DRUGS (4)
  1. HUMIRA [Suspect]
     Indication: RHEUMATOID ARTHRITIS
     Dosage: 40 MG, 1 IN 2 WK, SUBCUTANEOUS
     Route: 058
     Dates: start: 20031101
  2. PREDNISONE [Concomitant]
  3. VICODIN [Concomitant]
  4. METHOTREXATE [Concomitant]

REACTIONS (7)
  - MYOCARDIAL INFARCTION [None]
  - PAIN [None]
  - PNEUMONIA [None]
  - PNEUMOTHORAX [None]
  - RENAL FAILURE ACUTE [None]
  - SEPSIS [None]
  - SHOCK [None]
